FAERS Safety Report 15849565 (Version 1)
Quarter: 2019Q1

REPORT INFORMATION
  Report Type: Spontaneous
  Country: IT (occurrence: IT)
  Receive Date: 20190121
  Receipt Date: 20190121
  Transmission Date: 20190417
  Serious: Yes (Other)
  Sender: FDA-Public Use
  Company Number: IT-MYLANLABS-2019M1004102

PATIENT
  Age: 78 Year
  Sex: Female

DRUGS (4)
  1. EUTIROX [Concomitant]
     Active Substance: LEVOTHYROXINE SODIUM
     Indication: HYPOTHYROIDISM
     Dosage: 50 MICROGRAM
     Route: 048
  2. BISOPROLOL [Suspect]
     Active Substance: BISOPROLOL
     Indication: CARDIAC FAILURE
     Dosage: 1.25 MILLIGRAM, QD
     Route: 048
     Dates: start: 20161202, end: 20180626
  3. CARDIOASPIRIN [Concomitant]
     Active Substance: ASPIRIN
     Dosage: 100 MILLIGRAM
     Route: 048
  4. EUTIMIL [Concomitant]
     Active Substance: PAROXETINE HYDROCHLORIDE
     Dosage: 20 MILLIGRAM
     Route: 048

REACTIONS (2)
  - Atrioventricular block first degree [Recovering/Resolving]
  - Bundle branch block left [Recovering/Resolving]

NARRATIVE: CASE EVENT DATE: 20180626
